FAERS Safety Report 8351177-7 (Version None)
Quarter: 2012Q2

REPORT INFORMATION
  Report Type: 
  Country: None (occurrence: None)
  Receive Date: 20120510
  Receipt Date: 20120508
  Transmission Date: 20120825
  Serious: No
  Sender: FDA-Public Use
  Company Number: US-PFIZER INC-2012112464

PATIENT
  Sex: Male
  Weight: 90.7 kg

DRUGS (9)
  1. FLEXERIL [Concomitant]
     Indication: MUSCLE SPASMS
     Dosage: UNK
  2. CHANTIX [Suspect]
     Dosage: UNK
     Route: 048
  3. FENTANYL [Concomitant]
     Indication: PAIN
     Dosage: 75 UG, UNK
  4. OXYCODONE [Concomitant]
     Indication: PAIN
     Dosage: 60 MG, 2X/DAY
  5. NEURONTIN [Concomitant]
     Indication: NERVE INJURY
     Dosage: 600 MG, 3X/DAY
  6. XANAX [Suspect]
     Indication: SLEEP DISORDER
     Dosage: 1 MG, 3X/DAY
  7. ACETYLSALICYLIC ACID [Concomitant]
     Dosage: 81 MG, UNK
  8. CHANTIX [Suspect]
     Indication: SMOKING CESSATION THERAPY
     Dosage: 0.5 MG, 1X/DAY
     Route: 048
  9. CHANTIX [Suspect]
     Dosage: UNK
     Route: 048
     Dates: end: 20120401

REACTIONS (2)
  - NAUSEA [None]
  - INCORRECT DOSE ADMINISTERED [None]
